FAERS Safety Report 9145487 (Version 1)
Quarter: 2013Q1

REPORT INFORMATION
  Report Type: Spontaneous
  Country: US (occurrence: None)
  Receive Date: 20130226
  Receipt Date: 20130226
  Transmission Date: 20140127
  Serious: No
  Sender: FDA-Public Use
  Company Number: None

PATIENT
  Age: 68 Year
  Sex: Female

DRUGS (1)
  1. FORTEO 600MCG/2.4ML PEN [Suspect]
     Route: 058
     Dates: start: 20120619, end: 20130211

REACTIONS (1)
  - Muscular weakness [None]
